FAERS Safety Report 8833799 (Version 2)
Quarter: 2012Q4

REPORT INFORMATION
  Report Type: 
  Country: JP (occurrence: JP)
  Receive Date: 20121011
  Receipt Date: 20121213
  Transmission Date: 20130627
  Serious: Yes (Death, Disabling)
  Sender: FDA-Public Use
  Company Number: JP-ELI_LILLY_AND_COMPANY-JP201210002420

PATIENT
  Age: 70 Year
  Sex: Male
  Weight: 90 kg

DRUGS (18)
  1. ALIMTA [Suspect]
     Indication: LUNG ADENOCARCINOMA STAGE IV
     Dosage: 920 mg, UNK
     Route: 042
     Dates: start: 20101112, end: 20101112
  2. CISPLATIN [Concomitant]
     Indication: LUNG ADENOCARCINOMA STAGE IV
     Dosage: 140 mg, UNK
     Route: 042
     Dates: start: 20101112
  3. VITAMIN B12 [Concomitant]
     Dosage: UNK
     Dates: start: 20101101
  4. PANVITAN                           /00466101/ [Concomitant]
     Indication: PROPHYLAXIS
     Dosage: 1 g, UNK
     Route: 048
     Dates: start: 20101021
  5. NAPA [Concomitant]
     Indication: CANCER PAIN
     Dosage: 1.5 g, UNK
     Route: 048
     Dates: start: 20101021
  6. GASTER [Concomitant]
     Indication: PROPHYLAXIS
     Dosage: 20 mg, UNK
     Route: 048
     Dates: start: 20101021
  7. HOKUNALIN [Concomitant]
     Indication: BRONCHITIS CHRONIC
     Dosage: 2 g, UNK
     Route: 062
  8. FLUITRAN [Concomitant]
     Indication: HYPERTENSION
     Dosage: 0.5 mg, UNK
     Route: 048
  9. CONIEL [Concomitant]
     Indication: HYPERTENSION
     Dosage: 4 mg, UNK
     Route: 048
  10. GLACTIV [Concomitant]
     Indication: DIABETES MELLITUS
     Dosage: 50 mg, UNK
     Route: 048
  11. ZYLORIC [Concomitant]
     Indication: HYPERURICAEMIA
     Dosage: 100 mg, UNK
     Route: 048
  12. OXYCONTIN [Concomitant]
     Indication: CANCER PAIN
     Dosage: 10 mg, UNK
     Route: 048
     Dates: start: 20101011
  13. EMEND [Concomitant]
     Indication: PROPHYLAXIS
     Dosage: 125 mg, UNK
     Route: 048
     Dates: start: 20101012, end: 20101012
  14. EMEND [Concomitant]
     Dosage: 80 mg, UNK
     Dates: start: 20101013, end: 20101014
  15. DECADRAN                           /00016001/ [Concomitant]
     Indication: PROPHYLAXIS
     Dosage: 8 mg, UNK
     Route: 048
     Dates: start: 20101013, end: 20101013
  16. DECADRAN                           /00016002/ [Concomitant]
     Indication: PROPHYLAXIS
     Dosage: UNK
     Route: 042
     Dates: start: 20101112, end: 20101112
  17. ALOXI [Concomitant]
     Indication: PROPHYLAXIS
     Dosage: 0.75 mg, UNK
     Route: 042
     Dates: start: 20101112, end: 20101112
  18. LASIX                              /00032601/ [Concomitant]
     Indication: PROPHYLAXIS
     Dosage: 20 mg, UNK
     Route: 042
     Dates: start: 20101112, end: 20101112

REACTIONS (2)
  - Renal failure acute [Fatal]
  - Renal failure [Recovered/Resolved with Sequelae]
